FAERS Safety Report 4564428-1 (Version None)
Quarter: 2005Q1

REPORT INFORMATION
  Report Type: 
  Country: None (occurrence: None)
  Receive Date: 20050126
  Receipt Date: 20050112
  Transmission Date: 20050727
  Serious: Yes (Hospitalization)
  Sender: FDA-Public Use
  Company Number: 2005AP00221

PATIENT
  Age: 79 Year
  Sex: Female

DRUGS (3)
  1. OMEPRAZOLE [Suspect]
  2. FUROSEMIDE [Suspect]
     Indication: OEDEMA PERIPHERAL
     Dosage: 40 MG DAILY PO
     Route: 048
     Dates: start: 20040101
  3. AMLODIPINE BESYLATE [Concomitant]

REACTIONS (5)
  - DRUG ERUPTION [None]
  - HAEMODIALYSIS [None]
  - LYMPHOCYTE STIMULATION TEST POSITIVE [None]
  - RENAL FAILURE ACUTE [None]
  - SKIN LESION [None]
